FAERS Safety Report 14919462 (Version 6)
Quarter: 2019Q2

REPORT INFORMATION
  Report Type: Report from Study
  Country: US (occurrence: US)
  Receive Date: 20180521
  Receipt Date: 20190408
  Transmission Date: 20190711
  Serious: Yes (Life-Threatening, Other)
  Sender: FDA-Public Use
  Company Number: US-BRISTOL-MYERS SQUIBB COMPANY-BMS-2018-045296

PATIENT
  Age: 65 Year
  Sex: Male
  Weight: 91.5 kg

DRUGS (2)
  1. IPILIMUMAB [Suspect]
     Active Substance: IPILIMUMAB
     Indication: GASTROOESOPHAGEAL CANCER
     Dosage: 100 MG, Q3WK
     Route: 042
     Dates: start: 20180410
  2. NIVOLUMAB [Suspect]
     Active Substance: NIVOLUMAB
     Indication: GASTROOESOPHAGEAL CANCER
     Dosage: 300 MG, Q3WK
     Route: 042
     Dates: start: 20180410

REACTIONS (2)
  - Sepsis [Recovered/Resolved]
  - Large intestine perforation [Recovered/Resolved]

NARRATIVE: CASE EVENT DATE: 20180515
